FAERS Safety Report 24046365 (Version 1)
Quarter: 2024Q3

REPORT INFORMATION
  Report Type: Report from Study
  Country: DE (occurrence: DE)
  Receive Date: 20240703
  Receipt Date: 20240703
  Transmission Date: 20241017
  Serious: Yes (Hospitalization)
  Sender: CELLTRION
  Company Number: DE-CELLTRION INC.-2023DE023832

PATIENT

DRUGS (5)
  1. TRASTUZUMAB [Suspect]
     Active Substance: TRASTUZUMAB
     Indication: Breast cancer
     Dosage: 420 MG, DATE OF LAST APPLICATION PRIOR EVENT 04/AUG/2023
     Route: 065
     Dates: start: 20230823, end: 20231121
  2. PERJETA [Suspect]
     Active Substance: PERTUZUMAB
     Indication: Breast cancer
     Dosage: 420 MG, DATE OF LAST APPLICATION PRIOR EVENT 04/AUG/2023
     Route: 065
     Dates: start: 20230823, end: 20231121
  3. PACLITAXEL [Suspect]
     Active Substance: PACLITAXEL
     Indication: Breast cancer
     Dosage: 138 MG, DATE OF LAST APPLICATION PRIOR EVENT 04/AUG/2023. LAST DOSE PRIOR EVENT 138MG, 143.2 MG.
     Route: 065
     Dates: start: 20230804, end: 20231205
  4. CARBOPLATIN [Suspect]
     Active Substance: CARBOPLATIN
     Indication: Breast cancer
     Dosage: 470 MG, DATE OF LAST APPLICATION PRIOR EVENT 04/AUG/2023. LAST DOSE PRIOR EVENT 470MG, 485 MG.
     Route: 065
     Dates: start: 20230804, end: 20231121
  5. VAGISAN [DL- LACTIC ACID;SODIUM LACTATE] [Concomitant]
     Dosage: UNK
     Dates: start: 202309

REACTIONS (3)
  - Vertigo [Recovered/Resolved]
  - Diarrhoea [Not Recovered/Not Resolved]
  - Overdose [Unknown]
